FAERS Safety Report 16231718 (Version 3)
Quarter: 2019Q2

REPORT INFORMATION
  Report Type: Spontaneous
  Country: US (occurrence: US)
  Receive Date: 20190424
  Receipt Date: 20190520
  Transmission Date: 20190711
  Serious: No
  Sender: FDA-Public Use
  Company Number: US-HTU-2019US018648

PATIENT
  Sex: Female

DRUGS (1)
  1. VALCHLOR [Suspect]
     Active Substance: MECHLORETHAMINE
     Indication: CUTANEOUS T-CELL LYMPHOMA
     Dosage: UNK, DAILY
     Dates: start: 20190225

REACTIONS (11)
  - Application site erythema [Unknown]
  - Skin disorder [Unknown]
  - Skin lesion [Unknown]
  - Pruritus [Unknown]
  - Skin burning sensation [Unknown]
  - Application site pain [Unknown]
  - Skin papilloma [Unknown]
  - Erythema [Unknown]
  - Condition aggravated [Unknown]
  - Dry skin [Unknown]
  - Drug intolerance [Unknown]
